FAERS Safety Report 5144763-9 (Version None)
Quarter: 2006Q4

REPORT INFORMATION
  Report Type: 
  Country: None (occurrence: None)
  Receive Date: 20060905
  Receipt Date: 20060612
  Transmission Date: 20070319
  Serious: No
  Sender: FDA-Public Use
  Company Number: 34590

PATIENT
  Age: 73 Year
  Sex: Female
  Weight: 74.3899 kg

DRUGS (5)
  1. NEVANAC [Suspect]
     Indication: EYE PAIN
     Dates: start: 20060315, end: 20060609
  2. LISINOPRIL [Concomitant]
  3. LIPITOR [Concomitant]
  4. FOSAMAX [Concomitant]
  5. ASPIRIN [Concomitant]

REACTIONS (4)
  - FLUSHING [None]
  - GLARE [None]
  - HEADACHE [None]
  - PHOTOPHOBIA [None]
